FAERS Safety Report 20018502 (Version 2)
Quarter: 2021Q4

REPORT INFORMATION
  Report Type: Spontaneous
  Country: US (occurrence: US)
  Receive Date: 20211101
  Receipt Date: 20211118
  Transmission Date: 20220304
  Serious: No
  Sender: FDA-Public Use
  Company Number: US-HETERO-HET2021US01985

PATIENT

DRUGS (1)
  1. IRBESARTAN [Suspect]
     Active Substance: IRBESARTAN
     Indication: Product used for unknown indication
     Dosage: 75 MILLIGRAM
     Route: 048

REACTIONS (3)
  - Product substitution issue [Unknown]
  - Product taste abnormal [Not Recovered/Not Resolved]
  - Abdominal discomfort [Unknown]
